FAERS Safety Report 22854557 (Version 5)
Quarter: 2025Q1

REPORT INFORMATION
  Report Type: Spontaneous
  Country: BR (occurrence: BR)
  Receive Date: 20230823
  Receipt Date: 20250220
  Transmission Date: 20250409
  Serious: Yes (Life-Threatening, Hospitalization, Disabling, Congenital Anomaly, Other)
  Sender: PFIZER
  Company Number: BR-PFIZER INC-202300281498

PATIENT
  Sex: Female
  Weight: 3.065 kg

DRUGS (3)
  1. VARENICLINE TARTRATE [Suspect]
     Active Substance: VARENICLINE TARTRATE
     Indication: Smoking cessation therapy
     Route: 064
     Dates: start: 202002, end: 202003
  2. TOPIRAMATE [Concomitant]
     Active Substance: TOPIRAMATE
  3. LEVETIRACETAM [Concomitant]
     Active Substance: LEVETIRACETAM

REACTIONS (9)
  - Maternal exposure timing unspecified [Not Recovered/Not Resolved]
  - Cerebral atrophy congenital [Not Recovered/Not Resolved]
  - Heart disease congenital [Not Recovered/Not Resolved]
  - Laryngomalacia [Not Recovered/Not Resolved]
  - Dysphagia [Not Recovered/Not Resolved]
  - Fallot^s tetralogy [Recovering/Resolving]
  - Benign congenital hypotonia [Not Recovered/Not Resolved]
  - Epilepsy congenital [Not Recovered/Not Resolved]
  - Pneumonia [Recovering/Resolving]

NARRATIVE: CASE EVENT DATE: 20200201
